FAERS Safety Report 10007255 (Version 1)
Quarter: 2014Q1

REPORT INFORMATION
  Report Type: Spontaneous
  Country: DE (occurrence: None)
  Receive Date: 20140311
  Receipt Date: 20140311
  Transmission Date: 20141002
  Serious: Yes (Hospitalization)
  Sender: FDA-Public Use
  Company Number: 2234809

PATIENT
  Age: 71 Year
  Sex: Male

DRUGS (5)
  1. OXALIPLATIN [Suspect]
     Indication: COLON CANCER
  2. OXALIPLATIN [Suspect]
     Indication: METASTASES TO LIVER
  3. LEUCOROVIN/00566701/ [Concomitant]
  4. FLUOROURACIL [Concomitant]
  5. BEVACIZUMAB [Concomitant]

REACTIONS (6)
  - Hypersensitivity vasculitis [None]
  - Nephritic syndrome [None]
  - Haematuria [None]
  - Renal failure acute [None]
  - Renal failure chronic [None]
  - Nephrotic syndrome [None]
